FAERS Safety Report 6810726-8 (Version None)
Quarter: 2010Q2

REPORT INFORMATION
  Report Type: 
  Country: None (occurrence: None)
  Receive Date: 20100630
  Receipt Date: 20070628
  Transmission Date: 20101027
  Serious: No
  Sender: FDA-Public Use
  Company Number: US-PFIZER INC-2007043440

PATIENT
  Sex: Female
  Weight: 45 kg

DRUGS (6)
  1. ESTRING [Suspect]
     Indication: VULVOVAGINAL BURNING SENSATION
     Dates: start: 20030801
  2. ESTRING [Suspect]
     Indication: VULVOVAGINAL DISCOMFORT
  3. NORVASC [Concomitant]
  4. ANTIHYPERTENSIVES [Concomitant]
  5. METFORMIN HYDROCHLORIDE [Concomitant]
     Indication: BLOOD GLUCOSE
  6. LIPITOR [Concomitant]
     Indication: PROPHYLAXIS

REACTIONS (1)
  - DRUG INEFFECTIVE [None]
